FAERS Safety Report 16653243 (Version 1)
Quarter: 2019Q3

REPORT INFORMATION
  Report Type: Spontaneous
  Country: GB (occurrence: GB)
  Receive Date: 20190731
  Receipt Date: 20190731
  Transmission Date: 20191004
  Serious: Yes (Other)
  Sender: FDA-Public Use
  Company Number: GB-FRESENIUS KABI-FK201908338

PATIENT
  Sex: Female

DRUGS (10)
  1. VAMIN 18 ELECTROLYTE FREE [Suspect]
     Active Substance: AMINO ACIDS
     Indication: PARENTERAL NUTRITION
     Dosage: UNKNOWN
     Route: 042
     Dates: end: 20190713
  2. GLUCOSE 50% [Suspect]
     Active Substance: DEXTROSE
     Indication: PARENTERAL NUTRITION
     Dosage: UNKNOWN
     Route: 042
     Dates: end: 20190713
  3. POTASSIUM CHLORIDE 150 MG / ML [Suspect]
     Active Substance: POTASSIUM CHLORIDE
     Indication: PARENTERAL NUTRITION
     Dosage: UNKNOWN
     Route: 042
     Dates: end: 20190713
  4. MAGNESIUM SULFATE. [Suspect]
     Active Substance: MAGNESIUM SULFATE
     Indication: PARENTERAL NUTRITION
     Dosage: UNKNOWN
     Route: 042
     Dates: end: 20190713
  5. SODIUM GLYCEROPHOSPHATE [Suspect]
     Active Substance: SODIUM GLYCEROPHOSPHATE
     Indication: PARENTERAL NUTRITION
     Dosage: UNKNOWN
     Route: 042
     Dates: end: 20190713
  6. CALCIUM CHLORIDE. [Suspect]
     Active Substance: CALCIUM CHLORIDE
     Indication: PARENTERAL NUTRITION
     Dosage: UNKNOWN
     Route: 042
     Dates: end: 20190713
  7. WATER FOR INJECTIONS [Suspect]
     Active Substance: WATER
     Indication: PARENTERAL NUTRITION
     Dosage: UNKNOWN
     Route: 042
     Dates: end: 20190713
  8. ADDAMEL N [Suspect]
     Active Substance: CHROMIC CHLORIDE\CUPROUS CHLORIDE\FERRIC CHLORIDE\MANGANESE CHLORIDE\POTASSIUM IODIDE\SODIUM FLUORIDE\SODIUM MOLYBDATE DIHYDRATE\SODIUM SELENITE\ZINC CHLORIDE
     Indication: PARENTERAL NUTRITION
     Dosage: UNKNOWN
     Route: 042
     Dates: end: 20190713
  9. SOLUVIT N [Suspect]
     Active Substance: VITAMINS
     Indication: PARENTERAL NUTRITION
     Dosage: UNKNOWN
     Route: 042
     Dates: end: 20190713
  10. SODIUM CHLORIDE. [Suspect]
     Active Substance: SODIUM CHLORIDE
     Indication: PARENTERAL NUTRITION
     Dosage: UNKNOWN
     Route: 042
     Dates: end: 20190713

REACTIONS (5)
  - Headache [Unknown]
  - Arthralgia [Unknown]
  - Refeeding syndrome [Unknown]
  - Palpitations [Unknown]
  - Nausea [Unknown]
